FAERS Safety Report 19064241 (Version 2)
Quarter: 2021Q2

REPORT INFORMATION
  Report Type: Report from Study
  Country: TR (occurrence: TR)
  Receive Date: 20210326
  Receipt Date: 20210511
  Transmission Date: 20210717
  Serious: Yes (Hospitalization)
  Sender: FDA-Public Use
  Company Number: TR-PFIZER INC-2021207283

PATIENT
  Age: 56 Year
  Sex: Male
  Weight: 68 kg

DRUGS (1)
  1. INOTUZUMAB OZOGAMICIN [Suspect]
     Active Substance: INOTUZUMAB OZOGAMICIN
     Indication: B-CELL TYPE ACUTE LEUKAEMIA
     Dosage: 1.2 MG/M2/CYCLE (TOTAL DOSE PER CYCLE), ADMINISTERED IN 3 DIVIDED DOSES DAY 1, DAY 8, DAY 15
     Route: 042
     Dates: start: 20201110, end: 20210223

REACTIONS (1)
  - Pneumocystis jirovecii pneumonia [Not Recovered/Not Resolved]

NARRATIVE: CASE EVENT DATE: 20210223
